FAERS Safety Report 11128356 (Version 1)
Quarter: 2015Q2

REPORT INFORMATION
  Report Type: Spontaneous
  Country: FR (occurrence: FR)
  Receive Date: 20150521
  Receipt Date: 20150521
  Transmission Date: 20150821
  Serious: Yes (Other)
  Sender: FDA-Public Use
  Company Number: FR-JNJFOC-20150310703

PATIENT
  Age: 33 Year
  Sex: Female
  Weight: 82 kg

DRUGS (1)
  1. REMICADE [Suspect]
     Active Substance: INFLIXIMAB
     Indication: PRODUCT USED FOR UNKNOWN INDICATION
     Route: 042
     Dates: start: 20150123, end: 20150123

REACTIONS (7)
  - Back pain [Not Recovered/Not Resolved]
  - Drug specific antibody present [Not Recovered/Not Resolved]
  - Spondyloarthropathy [Unknown]
  - Drug ineffective [Unknown]
  - Middle insomnia [Unknown]
  - Antinuclear antibody positive [Unknown]
  - Drug resistance [Unknown]

NARRATIVE: CASE EVENT DATE: 201502
